FAERS Safety Report 10227406 (Version 2)
Quarter: 2014Q2

REPORT INFORMATION
  Report Type: Spontaneous
  Country: CA (occurrence: CA)
  Receive Date: 20140610
  Receipt Date: 20140613
  Transmission Date: 20141212
  Serious: Yes (Other)
  Sender: FDA-Public Use
  Company Number: CA-JNJFOC-20140602577

PATIENT
  Age: 63 Year
  Sex: Male

DRUGS (4)
  1. GALEXOS [Suspect]
     Indication: CHRONIC HEPATITIS C
     Route: 065
     Dates: start: 20140404, end: 20140530
  2. PEGASYS [Suspect]
     Indication: CHRONIC HEPATITIS C
     Route: 065
     Dates: start: 20140404, end: 20140530
  3. COPEGUS [Suspect]
     Indication: CHRONIC HEPATITIS C
     Route: 065
     Dates: start: 20140404, end: 20140530
  4. PROZAC [Suspect]
     Indication: ANXIETY
     Route: 065
     Dates: start: 201405

REACTIONS (2)
  - Anxiety [Unknown]
  - Hepatic enzyme increased [Unknown]
